FAERS Safety Report 14185684 (Version 3)
Quarter: 2018Q1

REPORT INFORMATION
  Report Type: Report from Study
  Country: None (occurrence: BR)
  Receive Date: 20171114
  Receipt Date: 20180119
  Transmission Date: 20180508
  Serious: Yes (Other)
  Sender: FDA-Public Use
  Company Number: BR-ABBVIE-17K-020-2159633-00

PATIENT
  Age: 46 Year
  Sex: Female
  Weight: 85 kg

DRUGS (1)
  1. HUMIRA [Suspect]
     Active Substance: ADALIMUMAB
     Indication: ANKYLOSING SPONDYLITIS
     Route: 058
     Dates: start: 20171028, end: 201712

REACTIONS (8)
  - Productive cough [Unknown]
  - Laryngeal obstruction [Recovered/Resolved]
  - Immunodeficiency [Unknown]
  - Drug hypersensitivity [Recovered/Resolved]
  - Skin exfoliation [Unknown]
  - Increased bronchial secretion [Recovering/Resolving]
  - Urticaria [Recovered/Resolved]
  - Somnolence [Recovered/Resolved]

NARRATIVE: CASE EVENT DATE: 2017
